FAERS Safety Report 9528059 (Version 2)
Quarter: 2013Q3

REPORT INFORMATION
  Report Type: Spontaneous
  Country: PL (occurrence: PL)
  Receive Date: 20130917
  Receipt Date: 20130918
  Transmission Date: 20140515
  Serious: Yes (Hospitalization)
  Sender: FDA-Public Use
  Company Number: PL-JNJFOC-20130907317

PATIENT
  Age: 38 Year
  Sex: Male

DRUGS (1)
  1. TOPIRAMATE [Suspect]
     Indication: SUICIDE ATTEMPT
     Dosage: 31.3 MG/KG
     Route: 048

REACTIONS (8)
  - Intentional overdose [Recovered/Resolved]
  - Grand mal convulsion [Recovered/Resolved]
  - Coma [Recovered/Resolved]
  - Metabolic acidosis [Recovered/Resolved]
  - Somnolence [Recovered/Resolved]
  - Vertigo [Recovered/Resolved]
  - Bradykinesia [Recovered/Resolved]
  - Speech disorder [Recovered/Resolved]
